FAERS Safety Report 7953463-9 (Version None)
Quarter: 2011Q4

REPORT INFORMATION
  Report Type: 
  Country: None (occurrence: None)
  Receive Date: 20111202
  Receipt Date: 20111129
  Transmission Date: 20120403
  Serious: No
  Sender: FDA-Public Use
  Company Number: US-PFIZER INC-2011291412

PATIENT
  Sex: Female
  Weight: 65.76 kg

DRUGS (4)
  1. OXYCODONE [Concomitant]
     Dosage: 5 MG, UNK
  2. LYRICA [Suspect]
     Indication: BACK DISORDER
     Dosage: 75 MG, 2X/DAY
     Route: 048
     Dates: start: 20110901
  3. AMBIEN [Concomitant]
     Dosage: UNK
  4. SYNTHROID [Concomitant]
     Indication: THYROID DISORDER
     Dosage: UNK

REACTIONS (7)
  - AMNESIA [None]
  - ALOPECIA [None]
  - OEDEMA PERIPHERAL [None]
  - WEIGHT INCREASED [None]
  - DIARRHOEA [None]
  - PAIN [None]
  - VISION BLURRED [None]
